FAERS Safety Report 8205925-7 (Version None)
Quarter: 2012Q1

REPORT INFORMATION
  Report Type: 
  Country: None (occurrence: None)
  Receive Date: 20120313
  Receipt Date: 20120307
  Transmission Date: 20120608
  Serious: Yes (Other)
  Sender: FDA-Public Use
  Company Number: US-ABBOTT-11P-163-0848122-00

PATIENT
  Sex: Female
  Weight: 88.076 kg

DRUGS (8)
  1. HUMIRA [Suspect]
     Indication: CROHN'S DISEASE
     Route: 058
     Dates: start: 20090101, end: 20110803
  2. AUGMENTIN '125' [Suspect]
     Indication: PNEUMONIA
     Dates: start: 20110803, end: 20110812
  3. HUMIRA [Suspect]
  4. HYDROCHLOROTHIAZIDE [Concomitant]
     Indication: HYPERTENSION
  5. ATENOLOL [Concomitant]
     Indication: HYPERTENSION
  6. LOPID [Concomitant]
     Indication: BLOOD CHOLESTEROL INCREASED
  7. METFORMIN HCL [Concomitant]
     Indication: DIABETES MELLITUS
     Dosage: 2000MG DAILY, 1000MG 2 IN 1 DAY
  8. NIASPAN [Concomitant]
     Indication: BLOOD CHOLESTEROL INCREASED
     Dosage: AT BEDTIME

REACTIONS (8)
  - PAIN [None]
  - PNEUMONIA [None]
  - URTICARIA [None]
  - LIP SWELLING [None]
  - DRUG INEFFECTIVE [None]
  - LOCAL SWELLING [None]
  - DIARRHOEA [None]
  - EXCORIATION [None]
